FAERS Safety Report 8274370-0 (Version None)
Quarter: 2012Q2

REPORT INFORMATION
  Report Type: 
  Country: None (occurrence: None)
  Receive Date: 20120411
  Receipt Date: 20120405
  Transmission Date: 20120825
  Serious: Yes (Death, Other)
  Sender: FDA-Public Use
  Company Number: US-BAYER-201041823NA

PATIENT
  Age: 81 Year
  Sex: Male
  Weight: 109 kg

DRUGS (22)
  1. ACTOS [Concomitant]
  2. VASOTEC [Concomitant]
  3. ETOMIDATE [Concomitant]
     Dosage: UNK
     Dates: start: 20060824
  4. CEFUROXIME [Concomitant]
     Dosage: 1.5 G, UNK
     Dates: start: 20060824
  5. PROTAMINE SULFATE [Concomitant]
     Dosage: 350 MG, UNK
     Dates: start: 20060824
  6. NITROGLYCERIN [Concomitant]
  7. PLAVIX [Concomitant]
  8. ZOCOR [Concomitant]
  9. TRASYLOL [Suspect]
     Indication: CORONARY ARTERY BYPASS
     Dosage: 1 ML, ONCE
     Route: 042
     Dates: start: 20060824, end: 20060824
  10. COREG [Concomitant]
  11. PROTAMINE SULFATE [Concomitant]
     Dosage: 100 MG, UNK
     Dates: start: 20060824
  12. SUFENTANIL CITRATE [Concomitant]
     Dosage: UNK
     Dates: start: 20060824
  13. PAVULON [Concomitant]
     Dosage: UNK
     Dates: start: 20060824
  14. LASIX [Concomitant]
  15. LISINOPRIL [Concomitant]
  16. SUCCINYLCHOLINE CHLORIDE [Concomitant]
     Dosage: UNK
     Dates: start: 20060824
  17. CONTRAST MEDIA [Concomitant]
     Indication: CATHETERISATION CARDIAC
     Dosage: UNK
     Dates: start: 20060803
  18. TRASYLOL [Suspect]
     Dosage: 200 ML, LOADING DOSE
     Route: 042
     Dates: start: 20060824, end: 20060824
  19. ASPIRIN [Concomitant]
  20. ATORVASTATIN [Concomitant]
  21. VERSED [Concomitant]
     Dosage: UNK
     Dates: start: 20060824
  22. PHENYLEPHRINE HCL [Concomitant]
     Dosage: UNK
     Dates: start: 20060824

REACTIONS (14)
  - STRESS [None]
  - PAIN [None]
  - INJURY [None]
  - URINARY TRACT INFECTION [None]
  - DEATH [None]
  - ANXIETY [None]
  - FEAR [None]
  - ATRIAL FIBRILLATION [None]
  - EMOTIONAL DISTRESS [None]
  - MULTI-ORGAN FAILURE [None]
  - RENAL FAILURE [None]
  - UNEVALUABLE EVENT [None]
  - RENAL IMPAIRMENT [None]
  - RENAL INJURY [None]
